FAERS Safety Report 9251135 (Version 1)
Quarter: 2013Q1

REPORT INFORMATION
  Report Type: Spontaneous
  Country: US (occurrence: None)
  Receive Date: 20130305
  Receipt Date: 20130305
  Transmission Date: 20140127
  Serious: Yes (Other)
  Sender: FDA-Public Use
  Company Number: 163-21880-12060270 (0)

PATIENT
  Age: 85 Year
  Sex: Female
  Weight: 71.67 kg

DRUGS (9)
  1. REVLIMID [Suspect]
     Indication: PLASMA CELL MYELOMA
     Dosage: 25 MG, 1 IN 1 D
     Route: 048
     Dates: start: 20101201
  2. COUMADIN (WARFARIN SODIUM) [Suspect]
  3. DEXAMETHASONE (DEXAMETHASONE) [Suspect]
  4. LOSARTAN (LOSARTAN) [Suspect]
  5. MVI PEDIATRIC [Suspect]
  6. SYNTHROID (LEVOTHYROXINE SODIUM) [Suspect]
  7. TAMOXIFEN [Suspect]
  8. VITAMIN D3 [Suspect]
  9. ZOCOR (SIMVASTATIN) [Suspect]

REACTIONS (1)
  - Thrombosis [None]
